FAERS Safety Report 5038311-1 (Version None)
Quarter: 2006Q2

REPORT INFORMATION
  Report Type: 
  Country: None (occurrence: None)
  Receive Date: 20060628
  Receipt Date: 20060628
  Transmission Date: 20061013
  Serious: No
  Sender: FDA-Public Use
  Company Number: None

PATIENT
  Sex: Male

DRUGS (1)
  1. SOLARCAINE  (LIDOCAINE) TOPICAL SPRAY [Suspect]
     Indication: SUNBURN
     Dosage: TOP -DERM
     Route: 061
     Dates: start: 20060610, end: 20060610

REACTIONS (2)
  - BURNS SECOND DEGREE [None]
  - OEDEMA PERIPHERAL [None]
